FAERS Safety Report 17861920 (Version 1)
Quarter: 2020Q2

REPORT INFORMATION
  Report Type: Report from Study
  Country: US (occurrence: US)
  Receive Date: 20200604
  Receipt Date: 20200604
  Transmission Date: 20200714
  Serious: Yes (Hospitalization)
  Sender: FDA-Public Use
  Company Number: NVSC2020US148935

PATIENT
  Age: 71 Year
  Sex: Male

DRUGS (16)
  1. BLINDED BAF312 [Suspect]
     Active Substance: SIPONIMOD
     Dosage: CODE NOT BROKEN
     Route: 048
     Dates: start: 20190719
  2. BLINDED BAF312 [Suspect]
     Active Substance: SIPONIMOD
     Indication: CEREBROVASCULAR ACCIDENT
     Dosage: CODE NOT BROKEN
     Route: 048
     Dates: start: 20190712
  3. PLACEBO [Suspect]
     Active Substance: UNSPECIFIED INGREDIENT
     Indication: CEREBRAL HAEMORRHAGE
     Dosage: CODE NOT BROKEN
     Route: 048
     Dates: start: 20190713
  4. BLINDED BAF312 [Suspect]
     Active Substance: SIPONIMOD
     Dosage: CODE NOT BROKEN
     Route: 048
     Dates: start: 20190714
  5. PLACEBO [Suspect]
     Active Substance: UNSPECIFIED INGREDIENT
     Dosage: CODE NOT BROKEN
     Route: 048
     Dates: start: 20190714
  6. BLINDED BAF312 [Suspect]
     Active Substance: SIPONIMOD
     Dosage: CODE NOT BROKEN
     Route: 048
     Dates: start: 20190719
  7. BLINDED BAF312 [Suspect]
     Active Substance: SIPONIMOD
     Indication: CEREBROVASCULAR ACCIDENT
     Dosage: CODE NOT BROKEN
     Route: 048
     Dates: start: 20190712
  8. BLINDED NO TREATMENT RECEIVED [Suspect]
     Active Substance: INVESTIGATIONAL PRODUCT
     Indication: CEREBROVASCULAR ACCIDENT
     Dosage: CODE NOT BROKEN
     Route: 048
     Dates: start: 20190712
  9. BLINDED BAF312 [Suspect]
     Active Substance: SIPONIMOD
     Indication: CEREBRAL HAEMORRHAGE
     Dosage: CODE NOT BROKEN
     Route: 048
     Dates: start: 20190713
  10. BLINDED NO TREATMENT RECEIVED [Suspect]
     Active Substance: INVESTIGATIONAL PRODUCT
     Dosage: CODE NOT BROKEN
     Route: 048
     Dates: start: 20190714
  11. BLINDED BAF312 [Suspect]
     Active Substance: SIPONIMOD
     Dosage: CODE NOT BROKEN
     Route: 048
     Dates: start: 20190714
  12. PLACEBO [Suspect]
     Active Substance: UNSPECIFIED INGREDIENT
     Indication: CEREBROVASCULAR ACCIDENT
     Dosage: CODE NOT BROKEN
     Route: 048
     Dates: start: 20190712
  13. BLINDED NO TREATMENT RECEIVED [Suspect]
     Active Substance: INVESTIGATIONAL PRODUCT
     Indication: CEREBRAL HAEMORRHAGE
     Dosage: CODE NOT BROKEN
     Route: 048
     Dates: start: 20190713
  14. BLINDED NO TREATMENT RECEIVED [Suspect]
     Active Substance: INVESTIGATIONAL PRODUCT
     Dosage: CODE NOT BROKEN
     Route: 048
     Dates: start: 20190719
  15. BLINDED BAF312 [Suspect]
     Active Substance: SIPONIMOD
     Indication: CEREBRAL HAEMORRHAGE
     Dosage: CODE NOT BROKEN
     Route: 048
     Dates: start: 20190713
  16. PLACEBO [Suspect]
     Active Substance: UNSPECIFIED INGREDIENT
     Dosage: CODE NOT BROKEN
     Route: 048
     Dates: start: 20190719

REACTIONS (2)
  - Transient ischaemic attack [Recovered/Resolved]
  - Transient aphasia [Recovered/Resolved]

NARRATIVE: CASE EVENT DATE: 20191011
